FAERS Safety Report 9277490 (Version 1)
Quarter: 2013Q2

REPORT INFORMATION
  Report Type: Spontaneous
  Country: US (occurrence: None)
  Receive Date: 20130503
  Receipt Date: 20130503
  Transmission Date: 20140414
  Serious: No
  Sender: FDA-Public Use
  Company Number: None

PATIENT
  Age: 62 Year
  Sex: Female
  Weight: 51.26 kg

DRUGS (1)
  1. BUSPIRONE [Suspect]
     Dates: start: 20130425, end: 20130426

REACTIONS (6)
  - Dizziness [None]
  - Dizziness [None]
  - Nausea [None]
  - Syncope [None]
  - Heart rate irregular [None]
  - Memory impairment [None]
